FAERS Safety Report 4616408-5 (Version None)
Quarter: 2005Q1

REPORT INFORMATION
  Report Type: 
  Country: None (occurrence: None)
  Receive Date: 20050321
  Receipt Date: 20050308
  Transmission Date: 20050727
  Serious: Yes (Hospitalization, Other)
  Sender: FDA-Public Use
  Company Number: 2005042698

PATIENT
  Sex: Female
  Weight: 72.5755 kg

DRUGS (12)
  1. NEURONTIN [Suspect]
     Indication: HEADACHE
     Dosage: 100 MG (100 MG, 1 IN 1 D), ORAL
     Route: 048
  2. ASPIRIN [Suspect]
     Indication: ILL-DEFINED DISORDER
     Dosage: ORAL
     Route: 048
  3. LANSOPRAZOLE [Concomitant]
  4. DILTIAZEM HYDROCHLORIDE [Concomitant]
  5. ALPRAZOLAM [Concomitant]
  6. AMITRIPTYLINE HYDROCHLORIDE [Concomitant]
  7. TOLTERODINE TARTRATE [Concomitant]
  8. FUROSEMIDE [Concomitant]
  9. ATORVASTATIN CALCIUM [Concomitant]
  10. THIAMINE HCL [Concomitant]
  11. ACETAMINOPHEN [Concomitant]
  12. CALCIUM (CALCIUM) [Concomitant]

REACTIONS (8)
  - ANAEMIA [None]
  - ARTERIAL DISORDER [None]
  - ASTHENIA [None]
  - CORONARY ARTERY OCCLUSION [None]
  - DYSPLASIA [None]
  - GASTRIC HAEMORRHAGE [None]
  - HEADACHE [None]
  - NAUSEA [None]
